FAERS Safety Report 7314647-6 (Version None)
Quarter: 2011Q1

REPORT INFORMATION
  Report Type: 
  Country: None (occurrence: None)
  Receive Date: 20110217
  Receipt Date: 20110217
  Transmission Date: 20110831
  Serious: Yes (Disabling)
  Sender: FDA-Public Use
  Company Number: None

PATIENT
  Sex: Female
  Weight: 53.2 kg

DRUGS (1)
  1. BOTOX [Suspect]
     Indication: SKIN WRINKLING
     Dates: start: 20101111

REACTIONS (6)
  - MUSCLE ATROPHY [None]
  - EYELID PTOSIS [None]
  - MUSCLE INJURY [None]
  - OVERDOSE [None]
  - CUTIS LAXA [None]
  - NERVE INJURY [None]
